FAERS Safety Report 13131206 (Version 1)
Quarter: 2017Q1

REPORT INFORMATION
  Report Type: Other
  Country: US (occurrence: US)
  Receive Date: 20170119
  Receipt Date: 20170119
  Transmission Date: 20170428
  Serious: Yes (Life-Threatening, Hospitalization, Other)
  Sender: FDA-Public Use
  Company Number: US-WARNER CHILCOTT, LLC-1062164

PATIENT
  Age: 38 Year
  Sex: Female

DRUGS (4)
  1. LO LOESTRIN FE [Suspect]
     Active Substance: ETHINYL ESTRADIOL\NORETHINDRONE ACETATE
     Indication: CONTRACEPTION
     Route: 048
     Dates: start: 201206, end: 201207
  2. ALBUTEROL. [Concomitant]
     Active Substance: ALBUTEROL
  3. MONTELUKAST [Concomitant]
     Active Substance: MONTELUKAST SODIUM
  4. PANTOPRAZOL [Concomitant]
     Active Substance: PANTOPRAZOLE SODIUM

REACTIONS (8)
  - Respiratory arrest [Recovered/Resolved with Sequelae]
  - Cerebrovascular accident [Recovered/Resolved with Sequelae]
  - Nausea [Recovered/Resolved with Sequelae]
  - Abdominal pain [Recovered/Resolved with Sequelae]
  - Vomiting [Recovered/Resolved with Sequelae]
  - Myalgia [Recovered/Resolved with Sequelae]
  - Anaemia [Recovered/Resolved with Sequelae]
  - Basilar artery thrombosis [Recovered/Resolved with Sequelae]

NARRATIVE: CASE EVENT DATE: 2012
